FAERS Safety Report 6384311-9 (Version None)
Quarter: 2009Q3

REPORT INFORMATION
  Report Type: 
  Country: None (occurrence: None)
  Receive Date: 20090928
  Receipt Date: 20090914
  Transmission Date: 20100115
  Serious: No
  Sender: FDA-Public Use
  Company Number: 007612

PATIENT
  Age: 38 Year
  Sex: Male
  Weight: 120 kg

DRUGS (4)
  1. BUSULFEX [Suspect]
     Dosage: 74 MG
     Route: 042
     Dates: start: 20090821, end: 20090821
  2. ENOXAPARIN SODIUM [Concomitant]
  3. DEXAMETHASONE TAB [Concomitant]
  4. PIPERACILLIN SODIUM AND TAZOBACTAM SODIUM [Concomitant]

REACTIONS (2)
  - ERYTHEMA [None]
  - EXTRAVASATION [None]
